FAERS Safety Report 16446978 (Version 6)
Quarter: 2020Q3

REPORT INFORMATION
  Report Type: Report from Study
  Country: US (occurrence: US)
  Receive Date: 20190618
  Receipt Date: 20190913
  Transmission Date: 20201104
  Serious: Yes (Death)
  Sender: FDA-Public Use
  Company Number: US-PFIZER INC-2019250390

PATIENT
  Age: 43 Year
  Sex: Female
  Weight: 75.28 kg

DRUGS (11)
  1. GLUCOSAMINE [Concomitant]
     Active Substance: GLUCOSAMINE
     Indication: ARTHRALGIA
     Dosage: 500 MG, DAILY
     Route: 048
     Dates: start: 20181019
  2. CODEINE AND GUAIFENESIN [Concomitant]
     Active Substance: CODEINE\GUAIFENESIN
     Indication: COUGH
     Dosage: 5?10 ML, AS NEEDED
     Route: 048
     Dates: start: 20190206
  3. AVELUMAB [Suspect]
     Active Substance: AVELUMAB
     Indication: NEOPLASM
     Dosage: 800 MG, DAY 1 AND DAY 15 OF EACH 28 DAY CYCLE
     Route: 042
     Dates: start: 20190318, end: 20190604
  4. CELLCEPT [Concomitant]
     Active Substance: MYCOPHENOLATE MOFETIL\MYCOPHENOLATE MOFETIL HYDROCHLORIDE
     Indication: IMMUNE-MEDIATED HEPATITIS
     Dosage: 500 MG, 2X/DAY
     Route: 048
     Dates: start: 20190615
  5. BRISDELLE [Concomitant]
     Active Substance: PAROXETINE MESYLATE
     Indication: DEPRESSION
     Dosage: 7.5 MG, DAILY
     Route: 048
     Dates: start: 20171003
  6. PREDNISONE. [Concomitant]
     Active Substance: PREDNISONE
     Indication: IMMUNE-MEDIATED HEPATITIS
     Dosage: 80 MG, DAILY
     Route: 048
     Dates: start: 20190615
  7. TALAZOPARIB. [Suspect]
     Active Substance: TALAZOPARIB
     Indication: NEOPLASM
     Dosage: 0.75 MG, 1X/DAY
     Route: 048
     Dates: start: 20190318, end: 20190610
  8. ELIQUIS [Concomitant]
     Active Substance: APIXABAN
     Indication: DEEP VEIN THROMBOSIS
     Dosage: 5 MG, 2X/DAY
     Route: 048
     Dates: start: 20190222
  9. REMERON [Concomitant]
     Active Substance: MIRTAZAPINE
     Indication: DECREASED APPETITE
     Dosage: 15 MG, DAILY
     Dates: start: 20190318
  10. CLARITIN [Concomitant]
     Active Substance: LORATADINE
     Indication: RHINITIS ALLERGIC
     Dosage: 10 MG, DAILY
     Route: 048
     Dates: start: 20190419
  11. ZOFRAN [Concomitant]
     Active Substance: ONDANSETRON HYDROCHLORIDE
     Indication: PROPHYLAXIS OF NAUSEA AND VOMITING
     Dosage: 8 MG, THRICE A DAY (TID) AS NEEDED (PRN)
     Route: 048
     Dates: start: 20171027

REACTIONS (1)
  - Neoplasm progression [Fatal]

NARRATIVE: CASE EVENT DATE: 20190606
